FAERS Safety Report 14690754 (Version 1)
Quarter: 2018Q1

REPORT INFORMATION
  Report Type: Spontaneous
  Country: US (occurrence: US)
  Receive Date: 20180328
  Receipt Date: 20180328
  Transmission Date: 20180509
  Serious: Yes (Other)
  Sender: FDA-Public Use
  Company Number: US-009507513-1803USA009436

PATIENT
  Age: 45 Year
  Sex: Female

DRUGS (8)
  1. LEVOTHYROXINE SODIUM. [Suspect]
     Active Substance: LEVOTHYROXINE SODIUM
  2. PRINIVIL [Suspect]
     Active Substance: LISINOPRIL
     Route: 048
  3. TURMERIC [Suspect]
     Active Substance: HERBALS\TURMERIC
  4. ATORVASTATIN [Suspect]
     Active Substance: ATORVASTATIN
  5. DULOXETINE HYDROCHLORIDE. [Suspect]
     Active Substance: DULOXETINE HYDROCHLORIDE
  6. PRASTERONE [Suspect]
     Active Substance: PRASTERONE
  7. HORMONES (UNSPECIFIED) [Suspect]
     Active Substance: UNSPECIFIED INGREDIENT
  8. VITAMINS (UNSPECIFIED) [Suspect]
     Active Substance: VITAMINS

REACTIONS (1)
  - Granulomatous liver disease [Recovering/Resolving]
